FAERS Safety Report 8027527-8 (Version None)
Quarter: 2012Q1

REPORT INFORMATION
  Report Type: 
  Country: None (occurrence: None)
  Receive Date: 20120106
  Receipt Date: 20120103
  Transmission Date: 20120608
  Serious: Yes (Other)
  Sender: FDA-Public Use
  Company Number: US-JNJFOC-20111203008

PATIENT
  Sex: Female
  Weight: 66.23 kg

DRUGS (1)
  1. NEOSPORIN [Suspect]
     Indication: CHOLECYSTECTOMY
     Dosage: VERY SMALL AMOUNT ON MY FINGER
     Route: 061
     Dates: start: 20111130, end: 20111130

REACTIONS (3)
  - PAIN [None]
  - DERMATITIS CONTACT [None]
  - OFF LABEL USE [None]
